FAERS Safety Report 7358464-X (Version None)
Quarter: 2011Q1

REPORT INFORMATION
  Report Type: 
  Country: None (occurrence: None)
  Receive Date: 20110317
  Receipt Date: 20110311
  Transmission Date: 20110831
  Serious: Yes (Life-Threatening, Hospitalization, Other)
  Sender: FDA-Public Use
  Company Number: DE-PFIZER INC-2011055116

PATIENT
  Age: 67 Year
  Sex: Female
  Weight: 92.971 kg

DRUGS (9)
  1. IBUPROFEN [Suspect]
     Indication: SPINAL OSTEOARTHRITIS
     Dosage: UNK
     Dates: end: 20101102
  2. RAMIPRIL [Suspect]
     Dosage: 2.5 MG, 2X/WEEK
     Route: 048
     Dates: start: 20100923, end: 20101102
  3. AMLODIPINE [Suspect]
     Indication: HYPERTENSION
     Dosage: 5 TO 10MG DAILY
     Dates: start: 20101103, end: 20101109
  4. CORDAREX [Suspect]
     Indication: ATRIAL FIBRILLATION
     Dosage: 200 TO 600MG DAILY
     Route: 048
     Dates: start: 20101103, end: 20101109
  5. RAMIPRIL [Suspect]
     Dosage: UNK
     Dates: start: 20101105
  6. DICLOFENAC [Suspect]
     Dosage: UNK
     Route: 048
     Dates: end: 20101102
  7. DELIX [Suspect]
     Dosage: 2.5 MG, 2X/DAY
     Route: 048
     Dates: start: 20101105, end: 20101109
  8. IBUPROFEN TABLETS [Suspect]
     Indication: SPINAL OSTEOARTHRITIS
     Dosage: 400 MG, 1X/DAY
     Route: 048
     Dates: start: 20101103, end: 20101103
  9. DELIX [Suspect]
     Dosage: 2.5 MG, 1X/DAY
     Route: 048
     Dates: start: 20101118, end: 20101129

REACTIONS (3)
  - RENAL FAILURE ACUTE [None]
  - TUBULOINTERSTITIAL NEPHRITIS [None]
  - CHEST PAIN [None]
